FAERS Safety Report 23563472 (Version 1)
Quarter: 2024Q1

REPORT INFORMATION
  Report Type: Spontaneous
  Country: CN (occurrence: CN)
  Receive Date: 20240226
  Receipt Date: 20240226
  Transmission Date: 20240410
  Serious: Yes (Other)
  Sender: FDA-Public Use
  Company Number: CN-002147023-NVSC2024CN034664

PATIENT
  Age: 47 Year
  Sex: Female
  Weight: 50 kg

DRUGS (2)
  1. PRANOPROFEN [Suspect]
     Active Substance: PRANOPROFEN
     Indication: Eyelid oedema
     Dosage: 1 DRP, QID (EXTERNAL USE)
     Route: 065
     Dates: start: 20240204, end: 20240206
  2. TOBRAMYCIN [Suspect]
     Active Substance: TOBRAMYCIN
     Indication: Eyelid oedema
     Dosage: 1 DRP, QID (EXTERNAL USE)
     Route: 065
     Dates: start: 20240204, end: 20240206

REACTIONS (4)
  - Eye pruritus [Recovering/Resolving]
  - Eye pain [Recovering/Resolving]
  - Lacrimation increased [Recovering/Resolving]
  - Pruritus [Recovering/Resolving]

NARRATIVE: CASE EVENT DATE: 20240205
